FAERS Safety Report 5145814-8 (Version None)
Quarter: 2006Q4

REPORT INFORMATION
  Report Type: 
  Country: None (occurrence: None)
  Receive Date: 20061108
  Receipt Date: 20061101
  Transmission Date: 20070319
  Serious: Yes (Other)
  Sender: FDA-Public Use
  Company Number: US-JNJFOC-20061100797

PATIENT
  Sex: Female
  Weight: 58.97 kg

DRUGS (5)
  1. REMICADE [Suspect]
     Indication: COLITIS ULCERATIVE
     Route: 042
  2. ASACHOL [Concomitant]
  3. PREMARIN [Concomitant]
  4. PAXIL [Concomitant]
  5. SYNTHROID [Concomitant]

REACTIONS (1)
  - CATHETERISATION CARDIAC [None]
